FAERS Safety Report 9443444 (Version 1)
Quarter: 2013Q3

REPORT INFORMATION
  Report Type: Spontaneous
  Country: IT (occurrence: IT)
  Receive Date: 20130806
  Receipt Date: 20130806
  Transmission Date: 20140515
  Serious: Yes (Hospitalization)
  Sender: FDA-Public Use
  Company Number: IT-GLAXOSMITHKLINE-B0913260A

PATIENT
  Age: 70 Year
  Sex: Female

DRUGS (5)
  1. ARIXTRA [Suspect]
     Indication: ATRIAL FIBRILLATION
     Route: 058
     Dates: start: 20130611, end: 20130722
  2. COUMADIN [Suspect]
     Indication: ATRIAL FIBRILLATION
     Dosage: 12.5MG WEEKLY
     Route: 048
     Dates: start: 20130601, end: 20130610
  3. TRIATEC [Concomitant]
     Route: 065
  4. CONGESCOR [Concomitant]
     Route: 065
  5. LOVASTATIN [Concomitant]
     Route: 065

REACTIONS (2)
  - Subdural haematoma [Recovering/Resolving]
  - Headache [Recovering/Resolving]
